FAERS Safety Report 16790712 (Version 1)
Quarter: 2019Q4

REPORT INFORMATION
  Report Type: Spontaneous
  Country: US (occurrence: US)
  Receive Date: 20190909
  Receipt Date: 20190909
  Transmission Date: 20200122
  Serious: No
  Sender: FDA-Public Use
  Company Number: None

PATIENT
  Age: 59 Year
  Sex: Female
  Weight: 60.75 kg

DRUGS (12)
  1. OXYGEN AT NIGHT [Concomitant]
  2. OMEGA FISH OIL [Concomitant]
     Active Substance: FISH OIL\OMEGA-3 FATTY ACIDS
  3. MULTIVITAMIN [Concomitant]
     Active Substance: VITAMINS
  4. FLONASE [Concomitant]
     Active Substance: FLUTICASONE PROPIONATE
  5. VITAMIN D3 [Concomitant]
     Active Substance: CHOLECALCIFEROL
  6. PROAIR HFA [Concomitant]
     Active Substance: ALBUTEROL SULFATE
  7. MILK THISTLE [Concomitant]
     Active Substance: DIETARY SUPPLEMENT\HERBALS\MILK THISTLE
  8. GARLIC. [Concomitant]
     Active Substance: GARLIC
  9. MONTELUKAST [Concomitant]
     Active Substance: MONTELUKAST SODIUM
  10. CALCIUM 500 MG [Concomitant]
  11. ROSUVASTATIN. [Concomitant]
     Active Substance: ROSUVASTATIN
  12. ROSUVASTATIN 40 MG [Suspect]
     Active Substance: ROSUVASTATIN
     Indication: BLOOD CHOLESTEROL
     Dosage: ?          QUANTITY:1 TABLET(S);?
     Route: 048
     Dates: start: 20180909

REACTIONS (7)
  - Myalgia [None]
  - Arthralgia [None]
  - Headache [None]
  - Wheezing [None]
  - Oropharyngeal pain [None]
  - Dyspnoea [None]
  - Dysphonia [None]

NARRATIVE: CASE EVENT DATE: 20180909
